FAERS Safety Report 21722255 (Version 1)
Quarter: 2022Q4

REPORT INFORMATION
  Report Type: Spontaneous
  Country: US (occurrence: None)
  Receive Date: 20221212
  Receipt Date: 20221212
  Transmission Date: 20230113
  Serious: No
  Sender: FDA-Public Use
  Company Number: None

PATIENT
  Age: 65 Year
  Sex: Female
  Weight: 98.88 kg

DRUGS (1)
  1. RENFLEXIS [Suspect]
     Active Substance: INFLIXIMAB-ABDA
     Indication: Psoriatic arthropathy
     Dosage: OTHER FREQUENCY : WK0,2AND6ASDIR;?
     Route: 042

REACTIONS (4)
  - Infection [None]
  - Haemorrhage [None]
  - Feeling abnormal [None]
  - Therapy interrupted [None]
